FAERS Safety Report 10070331 (Version 1)
Quarter: 2014Q2

REPORT INFORMATION
  Report Type: Spontaneous
  Country: US (occurrence: None)
  Receive Date: 20140409
  Receipt Date: 20140409
  Transmission Date: 20141212
  Serious: Yes (Hospitalization)
  Sender: FDA-Public Use
  Company Number: None

PATIENT
  Age: 55 Year
  Sex: Male
  Weight: 100 kg

DRUGS (3)
  1. GEMCITABINE HYDROCHLORIDE [Suspect]
  2. SUNITINIB MALATE [Suspect]
  3. LOVENOX [Concomitant]

REACTIONS (2)
  - Haematuria [None]
  - Anaemia [None]
